FAERS Safety Report 13840502 (Version 1)
Quarter: 2017Q3

REPORT INFORMATION
  Report Type: Report from Study
  Country: None (occurrence: MX)
  Receive Date: 20170807
  Receipt Date: 20170807
  Transmission Date: 20171127
  Serious: Yes (Death)
  Sender: FDA-Public Use
  Company Number: MX-ABBVIE-17P-107-2061127-00

PATIENT
  Sex: Female
  Weight: 53 kg

DRUGS (1)
  1. SIMDAX [Suspect]
     Active Substance: LEVOSIMENDAN
     Indication: CARDIOGENIC SHOCK
     Dosage: 1 FLASK A DAY
     Route: 050
     Dates: start: 20170727

REACTIONS (2)
  - Cardiogenic shock [Fatal]
  - Overdose [Fatal]

NARRATIVE: CASE EVENT DATE: 2017
